FAERS Safety Report 15596737 (Version 1)
Quarter: 2018Q4

REPORT INFORMATION
  Report Type: Spontaneous
  Country: US (occurrence: US)
  Receive Date: 20181108
  Receipt Date: 20181108
  Transmission Date: 20190205
  Serious: No
  Sender: FDA-Public Use
  Company Number: US-TEVA-2018-US-971068

PATIENT
  Age: 43 Year
  Sex: Male

DRUGS (1)
  1. LORAZEPAM. [Suspect]
     Active Substance: LORAZEPAM
     Dosage: 8 MILLIGRAM DAILY;
     Route: 065
     Dates: start: 1998

REACTIONS (3)
  - Drug screen negative [Unknown]
  - Insomnia [Unknown]
  - Drug ineffective [Unknown]
